FAERS Safety Report 9403678 (Version 2)
Quarter: 2014Q1

REPORT INFORMATION
  Report Type: Report from Study
  Country: CA (occurrence: CA)
  Receive Date: 20130717
  Receipt Date: 20140301
  Transmission Date: 20141002
  Serious: Yes (Other)
  Sender: FDA-Public Use
  Company Number: CA-ROCHE-1249430

PATIENT
  Age: 69 Year
  Sex: Male
  Weight: 83.9 kg

DRUGS (10)
  1. RITUXAN [Suspect]
     Indication: GRANULOMATOSIS WITH POLYANGIITIS
     Dosage: FREQUENCY: DAY 1, 15?LAST DOSE OF RITUXIMAB ON 15/AUG/2013
     Route: 042
     Dates: start: 20120718
  2. ASA [Suspect]
     Indication: PRODUCT USED FOR UNKNOWN INDICATION
     Route: 065
  3. PREDNISONE [Suspect]
     Indication: PRODUCT USED FOR UNKNOWN INDICATION
     Dosage: OD
     Route: 065
  4. PREDNISONE [Suspect]
     Dosage: OD
     Route: 065
  5. PREDNISONE [Suspect]
     Dosage: OD
     Route: 065
  6. DIPHENHYDRAMINE HCL [Concomitant]
     Indication: PREMEDICATION
     Route: 048
     Dates: start: 20120718
  7. ACETAMINOPHEN [Concomitant]
     Indication: PREMEDICATION
     Route: 048
     Dates: start: 20120718
  8. PREDNISONE [Concomitant]
     Indication: PREMEDICATION
     Route: 048
     Dates: start: 20120717
  9. LIPITOR [Concomitant]
     Route: 065
  10. KEPPRA [Concomitant]
     Route: 065

REACTIONS (2)
  - Subarachnoid haemorrhage [Recovered/Resolved]
  - Supraventricular extrasystoles [Unknown]
